FAERS Safety Report 6340739-4 (Version None)
Quarter: 2009Q3

REPORT INFORMATION
  Report Type: 
  Country: None (occurrence: None)
  Receive Date: 20090904
  Receipt Date: 20090901
  Transmission Date: 20100115
  Serious: Yes (Congenital Anomaly)
  Sender: FDA-Public Use
  Company Number: US-BRISTOL-MYERS SQUIBB COMPANY-14763908

PATIENT

DRUGS (2)
  1. SUSTIVA [Suspect]
     Route: 064
  2. GENTAMICIN [Suspect]
     Route: 064

REACTIONS (1)
  - HEARING IMPAIRED [None]
